FAERS Safety Report 7860641-6 (Version None)
Quarter: 2011Q4

REPORT INFORMATION
  Report Type: 
  Country: None (occurrence: None)
  Receive Date: 20111027
  Receipt Date: 20111017
  Transmission Date: 20120403
  Serious: Yes (Hospitalization, Other)
  Sender: FDA-Public Use
  Company Number: US-BAYER-2010-008388

PATIENT
  Age: 20 Year
  Sex: Female
  Weight: 95.692 kg

DRUGS (7)
  1. PROMETHAZINE [Concomitant]
     Indication: ABDOMINAL PAIN UPPER
     Dosage: 25 MG, QID
     Route: 048
     Dates: start: 20081128
  2. PROTONIX [Concomitant]
     Dosage: 40 MG, UNK
     Route: 048
  3. LORTAB [Concomitant]
     Indication: PAIN
     Dosage: UNK UNK, QID
     Route: 048
     Dates: start: 20070811, end: 20081212
  4. IBUPROFEN [Concomitant]
     Dosage: 800 MG, UNK
     Dates: start: 20070811, end: 20080811
  5. DROSPIRENONE AND ETHINYL ESTRADIOL [Suspect]
     Indication: CONTRACEPTION
     Dosage: UNK
     Dates: start: 20080901, end: 20090701
  6. FERROUS SULFATE TAB [Concomitant]
     Dosage: 325 MG, UNK
     Dates: start: 20080801
  7. ANTIBIOTICS [Concomitant]

REACTIONS (9)
  - CHOLELITHIASIS [None]
  - GASTROINTESTINAL DISORDER [None]
  - GAIT DISTURBANCE [None]
  - GALLBLADDER PAIN [None]
  - CHEST PAIN [None]
  - POST CHOLECYSTECTOMY SYNDROME [None]
  - BILIARY COLIC [None]
  - CHOLECYSTITIS CHRONIC [None]
  - GALLBLADDER DISORDER [None]
